FAERS Safety Report 12454065 (Version 2)
Quarter: 2016Q2

REPORT INFORMATION
  Report Type: Spontaneous
  Country: FR (occurrence: FR)
  Receive Date: 20160610
  Receipt Date: 20160620
  Transmission Date: 20160815
  Serious: Yes (Hospitalization, Other)
  Sender: FDA-Public Use
  Company Number: FR-BRISTOL-MYERS SQUIBB COMPANY-BMS-2016-044441

PATIENT
  Age: 63 Year
  Sex: Female
  Weight: 93 kg

DRUGS (1)
  1. OPDIVO [Suspect]
     Active Substance: NIVOLUMAB
     Indication: RENAL CANCER METASTATIC
     Dosage: 1 DF, UNK
     Route: 042
     Dates: start: 20151216, end: 20151231

REACTIONS (6)
  - Dyspnoea [Recovered/Resolved]
  - Autoimmune myocarditis [Recovering/Resolving]
  - Hepatocellular injury [Recovered/Resolved]
  - Muscular weakness [Recovered/Resolved]
  - Rhabdomyolysis [Recovered/Resolved]
  - Necrotising myositis [Recovering/Resolving]

NARRATIVE: CASE EVENT DATE: 20160111
